FAERS Safety Report 5974473-7 (Version None)
Quarter: 2008Q4

REPORT INFORMATION
  Report Type: 
  Country: None (occurrence: None)
  Receive Date: 20081201
  Receipt Date: 20081121
  Transmission Date: 20090506
  Serious: Yes (Other)
  Sender: FDA-Public Use
  Company Number: CO-PFIZER INC-2008097818

PATIENT
  Sex: Female

DRUGS (3)
  1. CHAMPIX [Suspect]
     Indication: SMOKING CESSATION THERAPY
     Route: 048
     Dates: start: 20080929, end: 20081120
  2. YASMIN [Concomitant]
  3. HYDROCORTISONE [Concomitant]

REACTIONS (3)
  - MOBILITY DECREASED [None]
  - MUSCLE SPASMS [None]
  - RASH [None]
